FAERS Safety Report 11105742 (Version 1)
Quarter: 2015Q2

REPORT INFORMATION
  Report Type: Spontaneous
  Country: US (occurrence: None)
  Receive Date: 20150508
  Receipt Date: 20150508
  Transmission Date: 20150821
  Serious: Yes (Hospitalization)
  Sender: FDA-Public Use
  Company Number: 2015-000893

PATIENT
  Age: 76 Year
  Sex: Female

DRUGS (1)
  1. ESTRACE [Suspect]
     Active Substance: ESTRADIOL
     Indication: GALLBLADDER DISORDER
     Dosage: HALF APPLICATOR FULL, ONCE WEEKLY-TOOK 2 DOSES ONLY, VAGINAL
     Route: 067
     Dates: start: 20150407, end: 201504

REACTIONS (3)
  - Musculoskeletal chest pain [None]
  - Muscle spasms [None]
  - Product use issue [None]

NARRATIVE: CASE EVENT DATE: 20150407
